FAERS Safety Report 25926664 (Version 2)
Quarter: 2025Q4

REPORT INFORMATION
  Report Type: Spontaneous
  Country: US (occurrence: US)
  Receive Date: 20251015
  Receipt Date: 20251027
  Transmission Date: 20260117
  Serious: No
  Sender: DR REDDYS
  Company Number: US-DRL-USA-USA/2025/10/015302

PATIENT
  Age: 25 Year
  Sex: Male

DRUGS (1)
  1. DOXYCYCLINE [Suspect]
     Active Substance: DOXYCYCLINE
     Indication: Confluent and reticulate papillomatosis

REACTIONS (2)
  - Abdominal discomfort [Unknown]
  - Drug ineffective [Unknown]
